FAERS Safety Report 8065861-6 (Version None)
Quarter: 2012Q1

REPORT INFORMATION
  Report Type: 
  Country: None (occurrence: None)
  Receive Date: 20120124
  Receipt Date: 20120117
  Transmission Date: 20120608
  Serious: Yes (Other)
  Sender: FDA-Public Use
  Company Number: US-BAYER-2012-006082

PATIENT
  Age: 38 Year
  Sex: Female
  Weight: 113 kg

DRUGS (2)
  1. METFORMIN HCL [Concomitant]
     Indication: PRODUCT USED FOR UNKNOWN INDICATION
  2. ASPIRIN [Suspect]
     Indication: ANALGESIC THERAPY
     Dosage: 2 DF, PRN
     Route: 048
     Dates: start: 20111201, end: 20120101

REACTIONS (1)
  - VAGINAL HAEMORRHAGE [None]
